FAERS Safety Report 24125777 (Version 1)
Quarter: 2024Q3

REPORT INFORMATION
  Report Type: Spontaneous
  Country: US (occurrence: US)
  Receive Date: 20240723
  Receipt Date: 20240723
  Transmission Date: 20241017
  Serious: No
  Sender: STEMLINE THERAPEUTICS
  Company Number: US-Stemline Therapeutics, Inc.-2024ST003120

PATIENT
  Age: 64 Year
  Sex: Female

DRUGS (4)
  1. ORSERDU [Suspect]
     Active Substance: ELACESTRANT
     Indication: Product used for unknown indication
     Dosage: 345 MG
     Route: 048
     Dates: start: 20240509
  2. ORSERDU [Suspect]
     Active Substance: ELACESTRANT
     Dosage: 86 MG - 4 TABLETS (344MG)
     Route: 048
     Dates: start: 20240512
  3. ORSERDU [Suspect]
     Active Substance: ELACESTRANT
     Route: 048
  4. ORSERDU [Suspect]
     Active Substance: ELACESTRANT
     Route: 048

REACTIONS (7)
  - Adverse drug reaction [Unknown]
  - Product use complaint [Unknown]
  - Burn oesophageal [Not Recovered/Not Resolved]
  - Dyspepsia [Unknown]
  - Vomiting [Unknown]
  - Gastrooesophageal reflux disease [Not Recovered/Not Resolved]
  - Fatigue [Not Recovered/Not Resolved]
